FAERS Safety Report 7984030-9 (Version None)
Quarter: 2011Q4

REPORT INFORMATION
  Report Type: 
  Country: None (occurrence: None)
  Receive Date: 20111216
  Receipt Date: 20111208
  Transmission Date: 20120403
  Serious: Yes (Hospitalization, Other)
  Sender: FDA-Public Use
  Company Number: FR-PFIZER INC-K201100848

PATIENT
  Age: 80 Year
  Sex: Female

DRUGS (10)
  1. SERC [Concomitant]
     Dosage: UNK
  2. URBANYL [Concomitant]
     Dosage: UNK
  3. ALLOPURINOL [Concomitant]
     Dosage: UNK
  4. BISOPROLOL FUMARATE [Concomitant]
     Dosage: UNK
  5. LEVOTHYROXINE SODIUM [Concomitant]
  6. LASIX [Interacting]
     Dosage: 3 DF, 1X/DAY
     Route: 048
     Dates: start: 20100901
  7. TEGRETOL [Concomitant]
     Dosage: UNK
  8. RAMIPRIL [Suspect]
     Dosage: 1 DF, 1X/DAY
     Route: 048
     Dates: end: 20101125
  9. NEURONTIN [Concomitant]
     Dosage: UNK
  10. LANTUS [Concomitant]

REACTIONS (7)
  - DRUG INTERACTION [None]
  - ASTHENIA [None]
  - RENAL FAILURE ACUTE [None]
  - CARDIAC FAILURE [None]
  - GAIT DISTURBANCE [None]
  - BEDRIDDEN [None]
  - BRONCHITIS [None]
